FAERS Safety Report 18953206 (Version 1)
Quarter: 2021Q1

REPORT INFORMATION
  Report Type: Spontaneous
  Country: US (occurrence: US)
  Receive Date: 20210228
  Receipt Date: 20210228
  Transmission Date: 20210420
  Serious: Yes (Life-Threatening, Disabling)
  Sender: FDA-Public Use
  Company Number: None

PATIENT
  Age: 21 Year
  Sex: Male
  Weight: 76.5 kg

DRUGS (11)
  1. RHINOCORT [Concomitant]
     Active Substance: BUDESONIDE
  2. PREDNISONE. [Suspect]
     Active Substance: PREDNISONE
  3. ISOTRETINOIN. [Concomitant]
     Active Substance: ISOTRETINOIN
  4. VITAMIN D [Concomitant]
     Active Substance: VITAMIN D NOS
  5. ALLEGRA [Concomitant]
     Active Substance: FEXOFENADINE HYDROCHLORIDE
  6. FLOVENT [Concomitant]
     Active Substance: FLUTICASONE PROPIONATE
  7. PEPCIDE [Concomitant]
  8. B6 [Concomitant]
     Active Substance: PYRIDOXINE HYDROCHLORIDE
  9. IRON SUPPLEMENT [Concomitant]
     Active Substance: IRON
  10. MONTELUKAST [Suspect]
     Active Substance: MONTELUKAST SODIUM
  11. ISOTRETINOIN. [Suspect]
     Active Substance: ISOTRETINOIN

REACTIONS (7)
  - Irritable bowel syndrome [None]
  - Colitis ulcerative [None]
  - Food allergy [None]
  - Asthma [None]
  - Psychotic disorder [None]
  - Acne cystic [None]
  - Gastrointestinal haemorrhage [None]

NARRATIVE: CASE EVENT DATE: 20200712
